FAERS Safety Report 8921515 (Version 1)
Quarter: 2012Q4

REPORT INFORMATION
  Report Type: 
  Country: NL (occurrence: NL)
  Receive Date: 20121122
  Receipt Date: 20121122
  Transmission Date: 20130627
  Serious: Yes (Hospitalization)
  Sender: FDA-Public Use
  Company Number: NL-BIOGENIDEC-2012BI054403

PATIENT
  Age: 20 Year
  Sex: Female

DRUGS (1)
  1. AVONEX [Suspect]
     Indication: RELAPSING-REMITTING MULTIPLE SCLEROSIS
     Route: 030
     Dates: start: 20120612

REACTIONS (1)
  - Vocal cord nodule removal [Unknown]
